FAERS Safety Report 17866549 (Version 1)
Quarter: 2020Q2

REPORT INFORMATION
  Report Type: Spontaneous
  Country: CN (occurrence: CN)
  Receive Date: 20200605
  Receipt Date: 20200605
  Transmission Date: 20200714
  Serious: Yes (Death, Other)
  Sender: FDA-Public Use
  Company Number: CN-ASPEN-GLO2020CN005516

PATIENT
  Age: 5 Month
  Sex: Male
  Weight: 7.5 kg

DRUGS (2)
  1. CYCLOPHOSPHAMIDE. [Suspect]
     Active Substance: CYCLOPHOSPHAMIDE
     Indication: BONE MARROW CONDITIONING REGIMEN
     Dosage: 50 MG/KG.D 2-3 DAYS BEFORE TRANSPLANT
     Route: 065
  2. BUSULFAN. [Suspect]
     Active Substance: BUSULFAN
     Indication: BONE MARROW CONDITIONING REGIMEN
     Dosage: 0.8 MG/KG, 4X 5-7 DAYS BEFORE TRANSPLANT
     Route: 065

REACTIONS (5)
  - Pneumonia [Fatal]
  - Septic shock [Fatal]
  - Multiple organ dysfunction syndrome [Fatal]
  - Gastroenteritis rotavirus [Fatal]
  - Product use in unapproved indication [Unknown]
